FAERS Safety Report 24940807 (Version 1)
Quarter: 2025Q1

REPORT INFORMATION
  Report Type: Spontaneous
  Country: US (occurrence: US)
  Receive Date: 20250207
  Receipt Date: 20250207
  Transmission Date: 20250409
  Serious: Yes (Hospitalization)
  Sender: Teyro Labs
  Company Number: US-TEYRO-2025-TY-000065

PATIENT
  Age: 6 Decade
  Sex: Male

DRUGS (10)
  1. GEMCITABINE [Suspect]
     Active Substance: GEMCITABINE
     Indication: Pancreatic carcinoma metastatic
     Route: 065
  2. PACLITAXEL [Concomitant]
     Active Substance: PACLITAXEL
     Route: 065
  3. DEXAMETHASONE [Concomitant]
     Active Substance: DEXAMETHASONE
     Route: 065
  4. DEXAMETHASONE [Concomitant]
     Active Substance: DEXAMETHASONE
  5. FUROSEMIDE [Concomitant]
     Active Substance: FUROSEMIDE
     Route: 065
  6. FUROSEMIDE [Concomitant]
     Active Substance: FUROSEMIDE
  7. LEUCOVORIN [Concomitant]
     Active Substance: LEUCOVORIN\LEUCOVORIN CALCIUM
     Route: 065
  8. FLUOROURACIL [Concomitant]
     Active Substance: FLUOROURACIL
     Route: 065
  9. IRINOTECAN [Concomitant]
     Active Substance: IRINOTECAN
     Route: 065
  10. OXALIPLATIN [Concomitant]
     Active Substance: OXALIPLATIN
     Route: 065

REACTIONS (1)
  - Myositis [Recovered/Resolved]
